FAERS Safety Report 6138079-1 (Version None)
Quarter: 2009Q1

REPORT INFORMATION
  Report Type: 
  Country: None (occurrence: None)
  Receive Date: 20090327
  Receipt Date: 20090327
  Transmission Date: 20090719
  Serious: Yes (Life-Threatening, Hospitalization)
  Sender: FDA-Public Use
  Company Number: None

PATIENT
  Age: 75 Year
  Sex: Female
  Weight: 73 kg

DRUGS (2)
  1. BIVALIRUDIN 250MG MEDICINE COMPANY [Suspect]
     Indication: PERIPHERAL VASCULAR DISORDER
     Dosage: 250 MG TIMES 2 IV DRIP
     Route: 041
     Dates: start: 20090309, end: 20090309
  2. TPA 20MG [Suspect]
     Indication: PERIPHERAL VASCULAR DISORDER
     Dosage: 20MG TIMES 1 OVER 24 HR IV DRIP
     Route: 041
     Dates: start: 20090309, end: 20090309

REACTIONS (6)
  - BLOOD PRESSURE DECREASED [None]
  - CIRCULATORY COLLAPSE [None]
  - HAEMORRHAGE [None]
  - LEG AMPUTATION [None]
  - PERIPHERAL COLDNESS [None]
  - SKIN DISCOLOURATION [None]
